FAERS Safety Report 24857989 (Version 1)
Quarter: 2025Q1

REPORT INFORMATION
  Report Type: Spontaneous
  Country: BR (occurrence: BR)
  Receive Date: 20250117
  Receipt Date: 20250117
  Transmission Date: 20250409
  Serious: Yes (Other)
  Sender: BIOGEN
  Company Number: BR-BIOGEN-2025BI01297351

PATIENT
  Sex: Male
  Weight: 114 kg

DRUGS (16)
  1. TECFIDERA [Suspect]
     Active Substance: DIMETHYL FUMARATE
     Indication: Multiple sclerosis
     Dosage: STARTING DOSE
     Route: 050
     Dates: start: 201610
  2. TECFIDERA [Suspect]
     Active Substance: DIMETHYL FUMARATE
     Dosage: MAINTENANCE DOSE
     Route: 050
     Dates: start: 20161001, end: 2021
  3. TECFIDERA [Suspect]
     Active Substance: DIMETHYL FUMARATE
     Route: 050
     Dates: start: 20160201
  4. TECFIDERA [Suspect]
     Active Substance: DIMETHYL FUMARATE
     Route: 050
     Dates: start: 20161001
  5. TECFIDERA [Suspect]
     Active Substance: DIMETHYL FUMARATE
     Dosage: MAINTENANCE DOSE
     Route: 050
     Dates: start: 20161001
  6. TECFIDERA [Suspect]
     Active Substance: DIMETHYL FUMARATE
     Dosage: MAINTENANCE DOSE
     Route: 050
  7. TECFIDERA [Suspect]
     Active Substance: DIMETHYL FUMARATE
     Route: 050
     Dates: start: 201610, end: 20220210
  8. TECFIDERA [Suspect]
     Active Substance: DIMETHYL FUMARATE
     Route: 050
     Dates: start: 201610, end: 20220211
  9. ENALAPRIL [Concomitant]
     Active Substance: ENALAPRIL
     Indication: Hypertension
     Route: 050
     Dates: start: 2014
  10. ENALAPRIL [Concomitant]
     Active Substance: ENALAPRIL
     Route: 050
  11. ENALAPRIL [Concomitant]
     Active Substance: ENALAPRIL
     Route: 050
  12. EUPRESSIM [Concomitant]
     Indication: Hypertension
     Route: 050
  13. EUPRESSIM [Concomitant]
     Route: 050
     Dates: start: 1988
  14. HYDROCHLOROTHIAZIDE [Concomitant]
     Active Substance: HYDROCHLOROTHIAZIDE
     Indication: Hypertension
     Route: 050
     Dates: start: 2015
  15. ADVIL [Concomitant]
     Active Substance: IBUPROFEN
     Indication: Arthralgia
     Route: 050
  16. CONDROFLEX (GLUCOSAMINE SULFATE + SODIUM CHONDROITIN SULFATE) [Concomitant]
     Indication: Arthralgia
     Route: 050

REACTIONS (24)
  - Optic neuritis [Not Recovered/Not Resolved]
  - Spinal column injury [Not Recovered/Not Resolved]
  - Stress [Unknown]
  - Pain [Not Recovered/Not Resolved]
  - Wound secretion [Unknown]
  - Arthralgia [Not Recovered/Not Resolved]
  - Blood cholesterol increased [Not Recovered/Not Resolved]
  - Constipation [Recovered/Resolved]
  - Haematoma [Unknown]
  - Visual impairment [Not Recovered/Not Resolved]
  - Spinal pain [Unknown]
  - Skin irritation [Recovered/Resolved]
  - Functional gastrointestinal disorder [Recovered/Resolved]
  - Osteoarthritis [Not Recovered/Not Resolved]
  - Weight fluctuation [Not Recovered/Not Resolved]
  - Multiple sclerosis [Unknown]
  - Neck pain [Not Recovered/Not Resolved]
  - Musculoskeletal discomfort [Not Recovered/Not Resolved]
  - Dysphemia [Recovered/Resolved]
  - Memory impairment [Not Recovered/Not Resolved]
  - Fatigue [Unknown]
  - Diarrhoea [Unknown]
  - Pruritus [Recovered/Resolved]
  - Fine motor skill dysfunction [Unknown]

NARRATIVE: CASE EVENT DATE: 20160101
